FAERS Safety Report 6213665-9 (Version None)
Quarter: 2009Q2

REPORT INFORMATION
  Report Type: 
  Country: None (occurrence: None)
  Receive Date: 20090601
  Receipt Date: 20090518
  Transmission Date: 20091009
  Serious: Yes (Hospitalization)
  Sender: FDA-Public Use
  Company Number: 8019567

PATIENT
  Age: 55 Year
  Sex: Female
  Weight: 66 kg

DRUGS (7)
  1. CDP870 [Suspect]
     Indication: RHEUMATOID ARTHRITIS
     Dosage: 200 MG 1/2W SC
     Route: 058
     Dates: start: 20051220, end: 20060606
  2. CDP870 [Suspect]
     Indication: RHEUMATOID ARTHRITIS
     Dosage: 400 MG 1/2W SC
     Route: 058
     Dates: start: 20060606, end: 20061023
  3. METHYLPREDNISOLONE [Concomitant]
  4. MELOXICAM [Concomitant]
  5. METHOTREXATE SODIUM [Concomitant]
  6. NATRII RISENDRONAT [Concomitant]
  7. CALGIGRAN FORTE [Concomitant]

REACTIONS (4)
  - METASTATIC NEOPLASM [None]
  - PNEUMONIA [None]
  - TUBERCULOSIS [None]
  - TUBERCULOUS PLEURISY [None]
